FAERS Safety Report 14718050 (Version 2)
Quarter: 2020Q2

REPORT INFORMATION
  Report Type: Spontaneous
  Country: US (occurrence: US)
  Receive Date: 20180404
  Receipt Date: 20200526
  Transmission Date: 20200713
  Serious: No
  Sender: FDA-Public Use
  Company Number: US-SA-2018SA065192

PATIENT
  Age: 34 Year
  Sex: Female

DRUGS (3)
  1. VITAMIN D NOS [Concomitant]
     Active Substance: VITAMIN D NOS
     Dosage: UNK
     Route: 065
  2. DUPIXENT [Suspect]
     Active Substance: DUPILUMAB
     Indication: DERMATITIS ATOPIC
     Dosage: 600 MG,1X
     Route: 058
  3. DUPIXENT [Suspect]
     Active Substance: DUPILUMAB
     Dosage: 300 MG/2ML, QOW
     Route: 058
     Dates: start: 20180225

REACTIONS (4)
  - Dry eye [Not Recovered/Not Resolved]
  - Rash [Not Recovered/Not Resolved]
  - Discomfort [Not Recovered/Not Resolved]
  - Eczema [Not Recovered/Not Resolved]

NARRATIVE: CASE EVENT DATE: 20200515
